FAERS Safety Report 18979102 (Version 4)
Quarter: 2021Q2

REPORT INFORMATION
  Report Type: Spontaneous
  Country: DZ (occurrence: BE)
  Receive Date: 20210308
  Receipt Date: 20210405
  Transmission Date: 20210717
  Serious: Yes (Hospitalization, Other)
  Sender: FDA-Public Use
  Company Number: DZ-SA-2021SA075433

PATIENT
  Sex: Female

DRUGS (2)
  1. DUPIXENT [Suspect]
     Active Substance: DUPILUMAB
     Indication: DERMATITIS ATOPIC
     Dosage: 300 MG, QOW
     Route: 058
     Dates: start: 20200923
  2. DROSPIBEL [Concomitant]
     Indication: CONSTIPATION
     Dosage: 0.0213

REACTIONS (12)
  - Loss of consciousness [Recovered/Resolved]
  - Cough [Recovered/Resolved]
  - Pharyngeal swelling [Unknown]
  - Palpitations [Recovered/Resolved]
  - Anaphylactic shock [Recovered/Resolved]
  - Wheezing [Recovered/Resolved]
  - Headache [Recovered/Resolved]
  - Paraesthesia oral [Unknown]
  - Reduced facial expression [Recovered/Resolved]
  - Dizziness [Recovered/Resolved]
  - Throat tightness [Recovered/Resolved]
  - Retrograde amnesia [Recovered/Resolved]

NARRATIVE: CASE EVENT DATE: 20210301
